FAERS Safety Report 11235451 (Version 2)
Quarter: 2016Q2

REPORT INFORMATION
  Report Type: Spontaneous
  Country: FI (occurrence: FI)
  Receive Date: 20150702
  Receipt Date: 20160530
  Transmission Date: 20160815
  Serious: Yes (Other)
  Sender: FDA-Public Use
  Company Number: FI-JNJFOC-20150619958

PATIENT

DRUGS (4)
  1. INFLIXIMAB, RECOMBINANT [Suspect]
     Active Substance: INFLIXIMAB
     Indication: IRIDOCYCLITIS
     Route: 042
  2. METHOTREXATE [Suspect]
     Active Substance: METHOTREXATE
     Indication: PRODUCT USED FOR UNKNOWN INDICATION
     Route: 065
  3. INFLIXIMAB, RECOMBINANT [Suspect]
     Active Substance: INFLIXIMAB
     Indication: UVEITIS
     Route: 042
  4. INFLIXIMAB, RECOMBINANT [Suspect]
     Active Substance: INFLIXIMAB
     Indication: JUVENILE IDIOPATHIC ARTHRITIS
     Route: 042

REACTIONS (53)
  - Colitis ulcerative [Unknown]
  - Alanine aminotransferase increased [Unknown]
  - Myalgia [Unknown]
  - Tonsillitis [Unknown]
  - Eczema [Unknown]
  - Weight increased [Unknown]
  - Alopecia [Unknown]
  - Double stranded DNA antibody [Unknown]
  - Dermatitis psoriasiform [Unknown]
  - Conjunctivitis [Unknown]
  - Gastroenteritis [Unknown]
  - Bronchitis [Unknown]
  - Cough [Unknown]
  - Hypersensitivity [Unknown]
  - Osteopenia [Unknown]
  - Varicella [Unknown]
  - Influenza [Unknown]
  - Urinary tract infection [Unknown]
  - Infection [Unknown]
  - Fatigue [Unknown]
  - Muscle tightness [Unknown]
  - Glaucoma [Unknown]
  - Infusion related reaction [Unknown]
  - Sinusitis [Unknown]
  - Migraine [Unknown]
  - Sepsis [Unknown]
  - Psoriasis [Unknown]
  - Lichen planus [Unknown]
  - Skin papilloma [Unknown]
  - Furuncle [Unknown]
  - Skin infection [Unknown]
  - Pyrexia [Unknown]
  - Cataract [Unknown]
  - Headache [Unknown]
  - Nausea [Unknown]
  - Injection site reaction [Unknown]
  - Anaphylactic reaction [Unknown]
  - Wound infection [Unknown]
  - Product use issue [Unknown]
  - Treatment noncompliance [Unknown]
  - Bone erosion [Unknown]
  - Pneumonia [Unknown]
  - Osteoporosis [Unknown]
  - Depression [Unknown]
  - Leukopenia [Unknown]
  - Uveitis [Unknown]
  - Appendicitis [Unknown]
  - Upper respiratory tract infection [Unknown]
  - Otitis media [Unknown]
  - Anaemia [Unknown]
  - Abdominal pain upper [Unknown]
  - Antinuclear antibody increased [Unknown]
  - Vasculitis [Unknown]
